FAERS Safety Report 10395814 (Version 1)
Quarter: 2014Q1

REPORT INFORMATION
  Report Type: Spontaneous
  Country: US (occurrence: None)
  Receive Date: 20130107
  Receipt Date: 20130107
  Transmission Date: 20141002
  Serious: Yes (Other)
  Sender: FDA-Public Use
  Company Number: PHEH2012US007578

PATIENT
  Age: 43 Year
  Sex: Female
  Weight: 75 kg

DRUGS (4)
  1. GILENYA [Suspect]
     Indication: MULTIPLE SCLEROSIS
     Route: 048
     Dates: start: 20120209, end: 20121018
  2. FENTANYL [Suspect]
     Indication: ARTHRALGIA
     Route: 062
  3. LIDODERM (LIDOCAINE) PATCH [Concomitant]
  4. EFFEXOR (VENLAFAXINE HYDROCHLORIDE) [Concomitant]

REACTIONS (10)
  - Clostridial infection [None]
  - Micturition urgency [None]
  - Pollakiuria [None]
  - Fatigue [None]
  - Pain [None]
  - Lymphocyte count decreased [None]
  - Alopecia [None]
  - Aspartate aminotransferase increased [None]
  - Alanine aminotransferase increased [None]
  - Abdominal discomfort [None]
